FAERS Safety Report 7095722-0 (Version None)
Quarter: 2010Q4

REPORT INFORMATION
  Report Type: 
  Country: None (occurrence: None)
  Receive Date: 20101111
  Receipt Date: 20101104
  Transmission Date: 20110411
  Serious: Yes (Hospitalization)
  Sender: FDA-Public Use
  Company Number: FR-NOVOPROD-317818

PATIENT
  Age: 62 Year
  Sex: Male

DRUGS (6)
  1. NOVORAPID [Suspect]
     Indication: TYPE 1 DIABETES MELLITUS
     Dosage: 10 IU, QD
     Route: 058
  2. CORDARONE [Suspect]
     Indication: ARRHYTHMIA
     Dosage: 200 MG, QD
     Route: 048
     Dates: start: 20090901, end: 20100628
  3. TRIATEC                            /00116401/ [Concomitant]
     Dosage: 5 MG, QD
     Route: 048
  4. PREVISCAN                          /00261401/ [Concomitant]
     Dosage: 0,75 TABLET/DAY
     Route: 048
  5. SOLUPRED                           /00016201/ [Concomitant]
     Dosage: 3 TABLETS MORNING
     Route: 048
  6. INSULATARD [Concomitant]
     Dosage: 16+10 IU
     Route: 058

REACTIONS (4)
  - ALVEOLITIS [None]
  - HYPOXIA [None]
  - LUNG DISORDER [None]
  - PYREXIA [None]
